FAERS Safety Report 8418742-X (Version None)
Quarter: 2012Q2

REPORT INFORMATION
  Report Type: 
  Country: None (occurrence: None)
  Receive Date: 20120531
  Receipt Date: 20120515
  Transmission Date: 20120825
  Serious: Yes (Congenital Anomaly)
  Sender: FDA-Public Use
  Company Number: DIAZ20120014

PATIENT
  Age: 48 Month

DRUGS (2)
  1. METHADONE HCL [Suspect]
     Indication: MATERNAL DRUGS AFFECTING FOETUS
     Dosage: TRANSPLACENTAL
     Route: 064
  2. DIAZEPAM [Suspect]
     Indication: MATERNAL DRUGS AFFECTING FOETUS
     Dosage: TRANSPLACENTAL
     Route: 064

REACTIONS (3)
  - VISUAL ACUITY REDUCED [None]
  - NYSTAGMUS [None]
  - STRABISMUS [None]
